FAERS Safety Report 9029809 (Version 4)
Quarter: 2015Q1

REPORT INFORMATION
  Report Type: Spontaneous
  Country: US (occurrence: US)
  Receive Date: 20130124
  Receipt Date: 20150115
  Transmission Date: 20150721
  Serious: Yes (Other)
  Sender: FDA-Public Use
  Company Number: US-JNJFOC-20130110114

PATIENT
  Sex: Female
  Weight: 49.9 kg

DRUGS (2)
  1. VISINE A [Suspect]
     Active Substance: NAPHAZOLINE HYDROCHLORIDE\PHENIRAMINE MALEATE
     Route: 047
  2. VISINE A [Suspect]
     Active Substance: NAPHAZOLINE HYDROCHLORIDE\PHENIRAMINE MALEATE
     Indication: DRY EYE
     Dosage: ONE DROP, A COUPLE TIMES A DAY
     Route: 047
     Dates: start: 20120915, end: 20130113

REACTIONS (7)
  - Off label use [Unknown]
  - Blister [Recovering/Resolving]
  - Ocular hyperaemia [Recovering/Resolving]
  - Drug ineffective for unapproved indication [Unknown]
  - Eye irritation [Recovering/Resolving]
  - Therapeutic response unexpected [Unknown]
  - Dry eye [Recovering/Resolving]
